FAERS Safety Report 6419981-X (Version None)
Quarter: 2009Q4

REPORT INFORMATION
  Report Type: 
  Country: None (occurrence: None)
  Receive Date: 20091029
  Receipt Date: 20091020
  Transmission Date: 20100525
  Serious: Yes (Other)
  Sender: FDA-Public Use
  Company Number: JP-PFIZER INC-2009246705

PATIENT
  Age: 32 Year

DRUGS (1)
  1. SOLU-MEDROL [Suspect]
     Dosage: 1000 MG/DAY
     Route: 042
     Dates: start: 20090401, end: 20090720

REACTIONS (1)
  - AUTOIMMUNE HEPATITIS [None]
